FAERS Safety Report 17888786 (Version 2)
Quarter: 2020Q4

REPORT INFORMATION
  Report Type: Spontaneous
  Country: JP (occurrence: JP)
  Receive Date: 20200612
  Receipt Date: 20201122
  Transmission Date: 20210113
  Serious: No
  Sender: FDA-Public Use
  Company Number: JP-AMGEN-JPNSP2020093302

PATIENT

DRUGS (1)
  1. ROMIPLATE [Suspect]
     Active Substance: ROMIPLOSTIM
     Indication: IMMUNE THROMBOCYTOPENIA
     Dosage: UNK  *SINGLE
     Route: 058

REACTIONS (1)
  - No adverse event [Unknown]
